FAERS Safety Report 5977755-8 (Version None)
Quarter: 2008Q4

REPORT INFORMATION
  Report Type: 
  Country: None (occurrence: None)
  Receive Date: 20081203
  Receipt Date: 20081201
  Transmission Date: 20090506
  Serious: No
  Sender: FDA-Public Use
  Company Number: US-JNJFOC-20081200679

PATIENT
  Sex: Male
  Weight: 79.38 kg

DRUGS (1)
  1. FENTANYL TRANSDERMAL SYSTEM [Suspect]
     Indication: BACK PAIN
     Dosage: 100 UG/HR 2 PATCHES
     Route: 062
     Dates: start: 20080801

REACTIONS (3)
  - BLINDNESS [None]
  - EXCESSIVE EYE BLINKING [None]
  - INCORRECT DRUG ADMINISTRATION DURATION [None]
